FAERS Safety Report 12658389 (Version 1)
Quarter: 2016Q3

REPORT INFORMATION
  Report Type: Spontaneous
  Country: US (occurrence: US)
  Receive Date: 20160817
  Receipt Date: 20160817
  Transmission Date: 20161109
  Serious: No
  Sender: FDA-Public Use
  Company Number: US-ASTRAZENECA-2016SE84429

PATIENT
  Age: 658 Month
  Sex: Female
  Weight: 95.3 kg

DRUGS (11)
  1. SYMBICORT [Suspect]
     Active Substance: BUDESONIDE\FORMOTEROL FUMARATE DIHYDRATE
     Indication: PNEUMONIA
     Dosage: 160-4.5 MCG, 2 PUFFS, TWICE A DAY
     Route: 055
     Dates: start: 20160618
  2. SYMBICORT [Suspect]
     Active Substance: BUDESONIDE\FORMOTEROL FUMARATE DIHYDRATE
     Indication: WHEEZING
     Dosage: 160-4.5 MCG, 2 PUFFS, TWICE A DAY
     Route: 055
     Dates: start: 20160618
  3. SYMBICORT [Suspect]
     Active Substance: BUDESONIDE\FORMOTEROL FUMARATE DIHYDRATE
     Indication: PNEUMONIA
     Dosage: 160-4.5 MCG, 2 PUFFS, TWICE A DAY
     Route: 055
     Dates: start: 201601
  4. SYMBICORT [Suspect]
     Active Substance: BUDESONIDE\FORMOTEROL FUMARATE DIHYDRATE
     Indication: WHEEZING
     Route: 055
     Dates: start: 20160801
  5. PROAIR HFA [Concomitant]
     Active Substance: ALBUTEROL SULFATE
     Dosage: AS NEEDED
  6. SYMBICORT [Suspect]
     Active Substance: BUDESONIDE\FORMOTEROL FUMARATE DIHYDRATE
     Indication: WHEEZING
     Dosage: 160-4.5 MCG, 2 PUFFS, TWICE A DAY
     Route: 055
     Dates: start: 201601
  7. SYMBICORT [Suspect]
     Active Substance: BUDESONIDE\FORMOTEROL FUMARATE DIHYDRATE
     Indication: PNEUMONIA
     Route: 055
     Dates: start: 20160801
  8. RETUXIMAB [Concomitant]
     Dates: start: 20160801
  9. PREDNISONE. [Concomitant]
     Active Substance: PREDNISONE
     Indication: EPISCLERITIS
     Dosage: 10.0MG UNKNOWN
     Route: 048
  10. PREDNISONE. [Concomitant]
     Active Substance: PREDNISONE
     Indication: EPISCLERITIS
     Dosage: 60.0MG UNKNOWN
     Route: 048
  11. VENTOLIN [Concomitant]
     Active Substance: ALBUTEROL SULFATE
     Dosage: AS NEEDED

REACTIONS (11)
  - Off label use [Unknown]
  - Oxygen saturation decreased [Unknown]
  - Tachycardia [Unknown]
  - Nervousness [Unknown]
  - Intentional product misuse [Unknown]
  - Throat tightness [Unknown]
  - Respiratory rate increased [Not Recovered/Not Resolved]
  - Candida infection [Unknown]
  - Episcleritis [Unknown]
  - Dyspnoea [Unknown]
  - Product use issue [Unknown]

NARRATIVE: CASE EVENT DATE: 201601
